FAERS Safety Report 7800204-1 (Version None)
Quarter: 2011Q4

REPORT INFORMATION
  Report Type: 
  Country: None (occurrence: None)
  Receive Date: 20111004
  Receipt Date: 20110920
  Transmission Date: 20120403
  Serious: Yes (Other)
  Sender: FDA-Public Use
  Company Number: 2011SP044364

PATIENT
  Age: 49 Year
  Sex: Female

DRUGS (1)
  1. CELESTAMINE TAB [Suspect]
     Indication: PRODUCT USED FOR UNKNOWN INDICATION
     Dosage: PO
     Route: 048
     Dates: start: 20100301, end: 20100301

REACTIONS (1)
  - LIVER DISORDER [None]
